FAERS Safety Report 9893668 (Version 2)
Quarter: 2014Q1

REPORT INFORMATION
  Report Type: Spontaneous
  Country: CH (occurrence: CH)
  Receive Date: 20140213
  Receipt Date: 20140213
  Transmission Date: 20141002
  Serious: Yes (Other)
  Sender: FDA-Public Use
  Company Number: CH-009507513-1402CHE001631

PATIENT
  Age: 24 Year
  Sex: Male

DRUGS (4)
  1. COSOPT [Suspect]
     Indication: PIGMENTARY GLAUCOMA
     Dosage: 1 GTT, BID
     Route: 047
     Dates: end: 201106
  2. COSOPT-S MONODOSIS [Suspect]
     Indication: PIGMENTARY GLAUCOMA
     Dosage: 1 GTT, BID
     Route: 047
     Dates: start: 201106
  3. XALATAN [Concomitant]
     Indication: PIGMENTARY GLAUCOMA
     Dosage: 1 GTT, UNK
     Route: 047
     Dates: start: 201110, end: 201210
  4. LATANOPROST [Concomitant]
     Indication: PIGMENTARY GLAUCOMA
     Dosage: 1 GTT, QD
     Route: 047
     Dates: start: 201210

REACTIONS (1)
  - Cataract [Unknown]
